FAERS Safety Report 11898170 (Version 1)
Quarter: 2016Q1

REPORT INFORMATION
  Report Type: Spontaneous
  Country: US (occurrence: US)
  Receive Date: 20160108
  Receipt Date: 20160108
  Transmission Date: 20160526
  Serious: No
  Sender: FDA-Public Use
  Company Number: US-009507513-1512USA014263

PATIENT
  Age: 81 Year
  Sex: Male

DRUGS (2)
  1. KETOROLAC TROMETHAMINE. [Concomitant]
     Active Substance: KETOROLAC TROMETHAMINE
     Indication: VISUAL ACUITY REDUCED
     Dosage: UNK, QD
  2. DORZOLAMIDE HYDROCHLORIDE. [Suspect]
     Active Substance: DORZOLAMIDE HYDROCHLORIDE
     Indication: VISUAL ACUITY REDUCED
     Dosage: UNK, QD

REACTIONS (1)
  - Keratopathy [Unknown]
